FAERS Safety Report 17134293 (Version 2)
Quarter: 2020Q1

REPORT INFORMATION
  Report Type: Report from Study
  Country: US (occurrence: US)
  Receive Date: 20191210
  Receipt Date: 20200203
  Transmission Date: 20200409
  Serious: Yes (Hospitalization, Disabling, Other)
  Sender: FDA-Public Use
  Company Number: US-MYLANLABS-2019M1112430

PATIENT
  Age: 18 Year
  Sex: Female
  Weight: 57.9 kg

DRUGS (69)
  1. ACETAMINOPHEN W/CAFFEINE [Concomitant]
     Active Substance: ACETAMINOPHEN\CAFFEINE
     Indication: TENSION HEADACHE
     Dosage: 1 DOSAGE FORM, PRN
     Route: 048
     Dates: start: 20150527, end: 2019
  2. ACETAMINOPHEN W/CAFFEINE [Concomitant]
     Active Substance: ACETAMINOPHEN\CAFFEINE
     Dosage: 2 DOSAGE FORM, PRN
     Route: 048
     Dates: start: 2019, end: 2019
  3. SERTRALINE [Concomitant]
     Active Substance: SERTRALINE HYDROCHLORIDE
     Indication: ANXIETY
     Dosage: 150 MILLIGRAM, QD
     Route: 048
     Dates: start: 20161209, end: 2018
  4. SERTRALINE [Concomitant]
     Active Substance: SERTRALINE HYDROCHLORIDE
     Dosage: 125 MILLIGRAM, QD
     Route: 048
     Dates: start: 2019, end: 2019
  5. TRIAMCINOLONE [Concomitant]
     Active Substance: TRIAMCINOLONE
     Indication: DERMATITIS
     Dosage: 1 DOSAGE FORM, PRN
     Route: 061
     Dates: start: 20160403
  6. OXYCODONE [Concomitant]
     Active Substance: OXYCODONE
     Indication: PAIN
     Dosage: 5 MILLIGRAM, PRN
     Route: 048
     Dates: start: 20180715
  7. CHOLECALCIFEROL [Concomitant]
     Active Substance: CHOLECALCIFEROL
     Dosage: 3000 DOSAGE FORM
     Route: 048
     Dates: start: 20191106
  8. BUSPIRONE [Concomitant]
     Active Substance: BUSPIRONE HYDROCHLORIDE
     Indication: ANXIETY
     Dosage: 30 MILLIGRAM, BID
     Route: 048
     Dates: start: 20190419
  9. USTEKINUMAB [Concomitant]
     Active Substance: USTEKINUMAB
     Dosage: 90 MILLIGRAM, BIMONTHLY (1 IN 8 WK)
     Route: 042
     Dates: start: 2019
  10. LIDOCAINE. [Concomitant]
     Active Substance: LIDOCAINE
     Indication: PRODUCT USED FOR UNKNOWN INDICATION
     Dosage: 0.2 MILLILITER, QD
     Route: 050
     Dates: start: 20191217, end: 20191218
  11. HUMIRA [Suspect]
     Active Substance: ADALIMUMAB
     Dosage: 40 MILLIGRAM, QW
     Route: 058
     Dates: start: 20180425, end: 20180705
  12. HUMIRA [Suspect]
     Active Substance: ADALIMUMAB
     Dosage: 40 MILLIGRAM, QW
     Route: 058
     Dates: start: 2019, end: 2019
  13. HYDROCORTISONE. [Concomitant]
     Active Substance: HYDROCORTISONE
     Indication: CROHN^S DISEASE
     Dosage: 1 DOSAGE FORM, BID
     Route: 061
     Dates: start: 20130220
  14. FLUOCINONIDE. [Concomitant]
     Active Substance: FLUOCINONIDE
     Indication: ECZEMA
     Dosage: 2 DOSAGE FORM, QD
     Route: 061
     Dates: start: 20170907
  15. ONDANSETRON [Concomitant]
     Active Substance: ONDANSETRON
     Indication: NAUSEA
     Dosage: 8 MILLIGRAM, PRN
     Route: 048
     Dates: start: 20150530
  16. SERTRALINE [Concomitant]
     Active Substance: SERTRALINE HYDROCHLORIDE
     Indication: DEPRESSION
     Dosage: 175 MILLIGRAM, QD
     Route: 048
     Dates: start: 2018, end: 2019
  17. SERTRALINE [Concomitant]
     Active Substance: SERTRALINE HYDROCHLORIDE
     Dosage: 25 MILLIGRAM, QD
     Route: 048
     Dates: start: 20190419
  18. AMOXICILLIN. [Concomitant]
     Active Substance: AMOXICILLIN
     Indication: IMPETIGO
     Dosage: 1750 MILLIGRAM, QD
     Route: 048
     Dates: start: 2018
  19. METHYLPREDNISOLONE. [Concomitant]
     Active Substance: METHYLPREDNISOLONE
     Indication: INFLAMMATION
     Dosage: 40 MILLIGRAM, QD
     Route: 042
     Dates: start: 20191218, end: 20191220
  20. MERCAPTOPURINE. [Suspect]
     Active Substance: MERCAPTOPURINE
     Indication: CROHN^S DISEASE
     Dosage: 25 MILLIGRAM, QD
     Route: 048
     Dates: start: 20101213, end: 201807
  21. HUMIRA [Suspect]
     Active Substance: ADALIMUMAB
     Dosage: 80 MILLIGRAM, ONCE
     Route: 058
     Dates: start: 20190507, end: 20190507
  22. HUMIRA [Suspect]
     Active Substance: ADALIMUMAB
     Dosage: 40 MILLIGRAM, QW
     Route: 058
     Dates: start: 2018, end: 201903
  23. FLUDROCORTISONE [Concomitant]
     Active Substance: FLUDROCORTISONE
     Indication: SYNCOPE
     Dosage: 0.05 MILLIGRAM, Q2D
     Route: 048
     Dates: start: 20171107
  24. NYSTATIN. [Concomitant]
     Active Substance: NYSTATIN
     Indication: SKIN IRRITATION
     Dosage: 1 DOSAGE FORM, PRN (USAGE WITH BAG CHANGES)
     Route: 061
     Dates: start: 2019
  25. MUPIROCIN. [Concomitant]
     Active Substance: MUPIROCIN
     Indication: IMPETIGO
  26. CIPROFLOXACIN. [Concomitant]
     Active Substance: CIPROFLOXACIN
     Indication: FISTULA
     Dosage: 1000 MILLIGRAM, QD
     Route: 048
     Dates: start: 2018
  27. GLUCAGON. [Concomitant]
     Active Substance: GLUCAGON
     Indication: GASTROINTESTINAL DISORDER
     Dosage: 0.5 MILLIGRAM, ONCE
     Route: 042
     Dates: start: 20190419
  28. GADOBUTROL. [Concomitant]
     Active Substance: GADOBUTROL
     Indication: MAGNETIC RESONANCE IMAGING
     Dosage: 5.8 MILLILITER, ONCE
     Route: 042
     Dates: start: 20190419
  29. ALBUTEROL                          /00139501/ [Concomitant]
     Active Substance: ALBUTEROL
     Indication: WHEEZING
     Dosage: 3 PUFF, AS REQUIRED
     Dates: start: 20170809
  30. LACTOBACILLUS ACIDOPHILUS [Concomitant]
     Active Substance: LACTOBACILLUS ACIDOPHILUS
     Indication: IRRITABLE BOWEL SYNDROME
     Dosage: 1 DOSAGE FORM, BID
     Route: 048
     Dates: start: 20130320, end: 2019
  31. RANITIDINE. [Concomitant]
     Active Substance: RANITIDINE
     Indication: GASTROOESOPHAGEAL REFLUX DISEASE
     Dosage: 150 MILLIGRAM, PRN
     Route: 048
     Dates: start: 20160219
  32. EUGYNON                            /00022701/ [Concomitant]
     Indication: DYSMENORRHOEA
     Dosage: 1 DOSAGE FORM, QD
     Route: 048
     Dates: start: 2018
  33. CEFDINIR. [Concomitant]
     Active Substance: CEFDINIR
     Indication: ACUTE SINUSITIS
     Dosage: 300 MILLIGRAM, QD
     Dates: start: 2019
  34. PREDNISONE. [Concomitant]
     Active Substance: PREDNISONE
     Indication: CROHN^S DISEASE
     Dosage: 30 MILLIGRAM, QD
     Route: 048
     Dates: start: 20111027, end: 2011
  35. PREDNISONE. [Concomitant]
     Active Substance: PREDNISONE
     Dosage: 30 MILLIGRAM, QD
     Route: 048
     Dates: start: 20150424, end: 20150518
  36. CLOBETASOL PROPIONATE. [Concomitant]
     Active Substance: CLOBETASOL PROPIONATE
     Indication: DERMATITIS CONTACT
     Dosage: UNK, BID (APPLY SPARINGLY TO AFFECTED AREAS ON THE EARS)
     Route: 061
     Dates: start: 2019
  37. ACETAMINOFEN [Concomitant]
     Active Substance: ACETAMINOPHEN
     Indication: PAIN
  38. HUMIRA [Suspect]
     Active Substance: ADALIMUMAB
     Dosage: 160 MILLIGRAM, ONCE (RESTARTING INDUCTION)
     Route: 058
     Dates: start: 20190420, end: 20190420
  39. ACETAMINOFEN [Concomitant]
     Active Substance: ACETAMINOPHEN
     Dosage: 875 MILLIGRAM, PRN
     Route: 048
     Dates: start: 20191221, end: 20191223
  40. CHOLECALCIFEROL [Concomitant]
     Active Substance: CHOLECALCIFEROL
     Indication: VITAMIN D DECREASED
     Dosage: 2000 MILLIGRAM
     Route: 048
     Dates: start: 20121212, end: 20140916
  41. USTEKINUMAB [Concomitant]
     Active Substance: USTEKINUMAB
     Indication: CROHN^S DISEASE
     Dosage: 390 MILLIGRAM, ONCE
     Route: 042
     Dates: start: 20190618, end: 20190618
  42. FERRIC CARBOXYMALTOSE [Concomitant]
     Active Substance: FERRIC CARBOXYMALTOSE
     Indication: IRON DEFICIENCY ANAEMIA
     Dosage: 750 MILLIGRAM, ONCE
     Route: 042
     Dates: start: 20190513, end: 20190513
  43. SORBITOL. [Concomitant]
     Active Substance: SORBITOL
     Indication: MAGNETIC RESONANCE IMAGING
     Dosage: 900 MILLILITER
     Route: 048
     Dates: start: 20190419
  44. OMEPRAZOLE. [Concomitant]
     Active Substance: OMEPRAZOLE
     Indication: GASTRITIS
     Dosage: 40 MILLIGRAM, QD
     Route: 048
     Dates: start: 20191221, end: 20191223
  45. FLEBOBAG RING LACT [Concomitant]
     Indication: PRODUCT USED FOR UNKNOWN INDICATION
     Dosage: UNK (1-5ML/KG/HR CONTINOUS)
     Route: 042
     Dates: start: 20191218, end: 20191218
  46. HYDROCORTISONE. [Concomitant]
     Active Substance: HYDROCORTISONE
     Dosage: UNK
     Route: 054
  47. ACETAMINOFEN [Concomitant]
     Active Substance: ACETAMINOPHEN
     Indication: PYREXIA
     Dosage: 500 MILLIGRAM, PRN
     Route: 048
     Dates: start: 20180423, end: 20180426
  48. ACETAMINOFEN [Concomitant]
     Active Substance: ACETAMINOPHEN
     Indication: PAIN
     Dosage: 825 MILLIGRAM, ONCE
     Route: 048
     Dates: start: 20180713, end: 20180713
  49. TACROLIMUS. [Concomitant]
     Active Substance: TACROLIMUS
     Indication: FISTULA
     Dosage: 1 DOSAGE FORM, QD
     Route: 061
     Dates: start: 2019
  50. SODIUM CHLORIDE. [Concomitant]
     Active Substance: SODIUM CHLORIDE
     Indication: PRODUCT USED FOR UNKNOWN INDICATION
     Dosage: 100 MILLILITER, QD
     Route: 042
     Dates: start: 20191217, end: 20191217
  51. CALCIUM                            /07357001/ [Concomitant]
     Indication: DYSPEPSIA
     Dosage: 500 MILLIGRAM, PRN
     Route: 048
     Dates: start: 20191220, end: 20191223
  52. ACETAMINOFEN [Concomitant]
     Active Substance: ACETAMINOPHEN
     Indication: PYREXIA
     Dosage: 820 MILLIGRAM, ONCE
     Route: 042
     Dates: start: 20180712, end: 20180712
  53. HUMIRA [Suspect]
     Active Substance: ADALIMUMAB
     Indication: CROHN^S DISEASE
     Dosage: 40 MILLIGRAM, QW
     Route: 058
     Dates: start: 20130508, end: 201903
  54. HUMIRA [Suspect]
     Active Substance: ADALIMUMAB
     Dosage: 5.174 MILLIGRAM, QW
     Route: 058
     Dates: start: 20130508, end: 20180417
  55. CETIRIZINE [Concomitant]
     Active Substance: CETIRIZINE HYDROCHLORIDE
     Indication: HYPERSENSITIVITY
     Dosage: 10 MILLIGRAM, QD
     Route: 048
     Dates: start: 20170807
  56. PROPRANOLOL [Concomitant]
     Active Substance: PROPRANOLOL HYDROCHLORIDE
     Indication: TENSION HEADACHE
     Dosage: 60 MILLIGRAM, QD
     Route: 048
     Dates: start: 20170602
  57. SERTRALINE [Concomitant]
     Active Substance: SERTRALINE HYDROCHLORIDE
     Dosage: 100 MILLIGRAM, QD
     Route: 048
     Dates: start: 2019
  58. ACETAMINOFEN [Concomitant]
     Active Substance: ACETAMINOPHEN
     Dosage: 1000 MILLIGRAM, PRN
     Route: 048
     Dates: start: 20190418
  59. MUPIROCIN. [Concomitant]
     Active Substance: MUPIROCIN
     Indication: FOLLICULITIS
     Dosage: 3 DOSAGE FORM, TID
     Route: 061
     Dates: start: 2018
  60. CEPHALEXIN                         /00145501/ [Concomitant]
     Active Substance: CEPHALEXIN
     Indication: IMPETIGO
     Dosage: 1500 MILLIGRAM, QD
     Route: 048
     Dates: start: 2019
  61. PREDNISONE. [Concomitant]
     Active Substance: PREDNISONE
     Dosage: 30 MILLIGRAM, QD
     Route: 048
     Dates: start: 20130220, end: 2013
  62. PREDNISONE. [Concomitant]
     Active Substance: PREDNISONE
     Dosage: 40 MILLIGRAM, QD
     Route: 048
     Dates: start: 20191221
  63. SUCRALFATE. [Concomitant]
     Active Substance: SUCRALFATE
     Indication: PRODUCT USED FOR UNKNOWN INDICATION
     Dosage: 1000 MILLIGRAM, QID
     Route: 048
     Dates: start: 20191219, end: 20191223
  64. MERCAPTOPURINE. [Suspect]
     Active Substance: MERCAPTOPURINE
     Dosage: 25 MILLIGRAM, QD
     Route: 048
     Dates: start: 201809, end: 201906
  65. MERCAPTOPURINE. [Suspect]
     Active Substance: MERCAPTOPURINE
     Dosage: 25 MILLIGRAM, QD
     Route: 048
     Dates: start: 20171201, end: 201807
  66. ONDANSETRON [Concomitant]
     Active Substance: ONDANSETRON
     Indication: VOMITING
  67. SERTRALINE [Concomitant]
     Active Substance: SERTRALINE HYDROCHLORIDE
     Indication: POST-TRAUMATIC STRESS DISORDER
     Dosage: 150 MILLIGRAM, QD
     Route: 048
     Dates: start: 2019, end: 2019
  68. CHOLECALCIFEROL [Concomitant]
     Active Substance: CHOLECALCIFEROL
     Indication: CROHN^S DISEASE
     Dosage: 3000 DOSAGE FORM, QD
     Route: 048
     Dates: start: 20110401, end: 20120705
  69. METRONIDAZOLE. [Concomitant]
     Active Substance: METRONIDAZOLE
     Indication: FISTULA
     Dosage: 1000 MILLIGRAM, QD
     Route: 048
     Dates: start: 2018

REACTIONS (3)
  - Fistula [Not Recovered/Not Resolved]
  - Skin candida [Not Recovered/Not Resolved]
  - Hepatotoxicity [Not Recovered/Not Resolved]

NARRATIVE: CASE EVENT DATE: 2019
